FAERS Safety Report 14253786 (Version 2)
Quarter: 2019Q4

REPORT INFORMATION
  Report Type: Report from Study
  Country: KR (occurrence: KR)
  Receive Date: 20171206
  Receipt Date: 20191007
  Transmission Date: 20200122
  Serious: Yes (Hospitalization)
  Sender: FDA-Public Use
  Company Number: KR-TAKEDA-2017MPI010985

PATIENT
  Age: 84 Year
  Sex: Male

DRUGS (33)
  1. IXAZOMIB [Suspect]
     Active Substance: IXAZOMIB
     Dosage: 3 MILLIGRAM, UNK
     Route: 048
     Dates: start: 20170612
  2. APEROL ES [Concomitant]
     Indication: DECREASED APPETITE
     Dosage: 650 MG, QD
     Route: 048
     Dates: start: 20170403, end: 20170423
  3. TYRENOL ER [Concomitant]
     Indication: GASTROENTERITIS
     Dosage: 650 MG, TID
     Route: 048
     Dates: start: 20170419, end: 20170423
  4. TIROPA [Concomitant]
     Active Substance: TIROPRAMIDE
     Indication: PROPHYLAXIS
     Dosage: 100 MG, TID
     Route: 048
     Dates: start: 20170424
  5. FEROBA U [Concomitant]
     Active Substance: FERROUS SULFATE
     Indication: CHRONIC KIDNEY DISEASE
     Dosage: 256 MG, QD
     Route: 048
     Dates: start: 20150504
  6. MAGNES [Concomitant]
     Indication: HYPOMAGNESAEMIA
     Dosage: UNK UNK, BID
     Route: 048
     Dates: start: 20170410, end: 20170424
  7. VITASOL                            /01825701/ [Concomitant]
     Indication: GASTROENTERITIS
     Dosage: 250 ML, QD
     Route: 042
     Dates: start: 20170419, end: 20170419
  8. MAGNESIUM [Concomitant]
     Active Substance: MAGNESIUM
     Dosage: 6 G, QD
     Route: 042
     Dates: start: 20170506, end: 20170506
  9. RENALMIN [Concomitant]
     Indication: CHRONIC KIDNEY DISEASE
     Dosage: 103.2 MG, QD
     Route: 048
     Dates: start: 20151230
  10. SEPTRIN [Concomitant]
     Active Substance: SULFAMETHOXAZOLE\TRIMETHOPRIM
     Indication: INFECTION PROPHYLAXIS
     Dosage: UNK MG, UNK
     Route: 048
     Dates: start: 20170410
  11. ALVERIX [Concomitant]
     Indication: PROPHYLAXIS OF NAUSEA AND VOMITING
     Dosage: UNK, TID
     Route: 048
     Dates: start: 20170417, end: 20170504
  12. TAMIPOOL [Concomitant]
     Active Substance: VITAMINS
     Indication: GASTROENTERITIS
     Dosage: UNK, QD
     Route: 042
     Dates: start: 20170419, end: 20170419
  13. DEXAMETHASONE. [Suspect]
     Active Substance: DEXAMETHASONE
     Indication: PLASMA CELL MYELOMA
     Dosage: 20 MILLIGRAM, 1/WEEK
     Route: 048
     Dates: start: 20170313, end: 20170501
  14. ARESTAL [Concomitant]
     Active Substance: LOPERAMIDE OXIDE
     Indication: GASTROENTERITIS
     Dosage: 1 MG, BID
     Route: 048
     Dates: start: 20170419, end: 20170421
  15. FURTMAN [Concomitant]
     Indication: ELECTROLYTE SUBSTITUTION THERAPY
     Dosage: 2 ML, QD
     Route: 042
     Dates: start: 20170512
  16. IXAZOMIB [Suspect]
     Active Substance: IXAZOMIB
     Dosage: 3 MILLIGRAM, UNK
     Route: 048
     Dates: start: 20170515
  17. ASPIRIN                            /00002701/ [Concomitant]
     Active Substance: ASPIRIN
     Indication: THROMBOSIS PROPHYLAXIS
     Dosage: 100 MG, QD
     Route: 048
     Dates: start: 20170313
  18. NEURONTIN [Concomitant]
     Active Substance: GABAPENTIN
     Indication: PERIPHERAL SENSORY NEUROPATHY
     Dosage: 100 MG, TID
     Route: 048
     Dates: start: 20170417, end: 20170423
  19. PANBURON [Concomitant]
     Indication: PROPHYLAXIS OF NAUSEA AND VOMITING
     Dosage: UNK, TID
     Route: 048
     Dates: start: 20170417
  20. TIROPA [Concomitant]
     Active Substance: TIROPRAMIDE
     Indication: GASTROENTERITIS
     Dosage: 100 MG, TID
     Route: 048
     Dates: start: 20170419, end: 20170423
  21. ALGIRON [Concomitant]
     Active Substance: CIMETROPIUM BROMIDE
     Indication: GASTROENTERITIS
     Dosage: 5 MG, QD
     Route: 042
     Dates: start: 20170419, end: 20170419
  22. IXAZOMIB [Suspect]
     Active Substance: IXAZOMIB
     Indication: PLASMA CELL MYELOMA
     Dosage: 4 MILLIGRAM, UNK
     Route: 048
     Dates: start: 20170313, end: 20170501
  23. AMLODIPIN                          /00972401/ [Concomitant]
     Active Substance: AMLODIPINE BESYLATE
     Indication: HYPERTENSION
     Dosage: 5 MG, QD
     Route: 048
     Dates: start: 20150430
  24. ERDOPECT [Concomitant]
     Indication: UPPER RESPIRATORY TRACT INFECTION
     Dosage: 300 MG, TID
     Route: 048
     Dates: start: 20170308, end: 20170423
  25. OZEX                               /01070602/ [Concomitant]
     Active Substance: TOSUFLOXACIN TOSYLATE
     Indication: GASTROENTERITIS
     Dosage: 150 MG, TID
     Route: 048
     Dates: start: 20170419, end: 20170423
  26. DIOVAN [Concomitant]
     Active Substance: VALSARTAN
     Indication: HYPERTENSION
     Dosage: 40 MG, QD
     Route: 048
     Dates: start: 20170414
  27. NEURONTIN [Concomitant]
     Active Substance: GABAPENTIN
     Dosage: 300 MG, QD
     Route: 048
     Dates: start: 20170424
  28. XYZAL [Concomitant]
     Active Substance: LEVOCETIRIZINE DIHYDROCHLORIDE
     Indication: PROPHYLAXIS
     Dosage: 5 MG, QD
     Route: 048
     Dates: start: 20170410
  29. MAGNESIUM [Concomitant]
     Active Substance: MAGNESIUM
     Indication: HYPOMAGNESAEMIA
     Dosage: 4 G, QD
     Route: 042
     Dates: start: 20170504, end: 20170504
  30. LENALIDOMIDE [Suspect]
     Active Substance: LENALIDOMIDE
     Indication: PLASMA CELL MYELOMA
     Dosage: 10 MILLIGRAM, UNK
     Route: 048
     Dates: start: 20170313, end: 20170501
  31. OLANZAPINE. [Concomitant]
     Active Substance: OLANZAPINE
     Indication: PROPHYLAXIS OF NAUSEA AND VOMITING
     Dosage: 2.5 MG, BID
     Route: 048
     Dates: start: 20170417, end: 20170423
  32. MAGNESIUM [Concomitant]
     Active Substance: MAGNESIUM
     Dosage: 4 G, QD
     Route: 042
     Dates: start: 20170511, end: 20170511
  33. PENIRAMIN [Concomitant]
     Indication: PREMEDICATION
     Dosage: 4 MG, UNK
     Route: 042
     Dates: start: 20170509, end: 20170510

REACTIONS (1)
  - Asthenia [Recovering/Resolving]

NARRATIVE: CASE EVENT DATE: 20170501
